FAERS Safety Report 9031465 (Version 1)
Quarter: 2013Q1

REPORT INFORMATION
  Report Type: Report from Study
  Country: ID (occurrence: ID)
  Receive Date: 20130124
  Receipt Date: 20130124
  Transmission Date: 20140127
  Serious: Yes (Death)
  Sender: FDA-Public Use
  Company Number: ID-ROCHE-1182989

PATIENT
  Age: 38 Year
  Sex: Female

DRUGS (4)
  1. AVASTIN [Suspect]
     Indication: COLORECTAL CANCER METASTATIC
     Dosage: LAST DOSE OF BEVACIZUMAB RECEIVED ON 24/DEC/2012
     Route: 041
  2. LEUCOVORIN [Concomitant]
     Indication: COLORECTAL CANCER METASTATIC
  3. 5-FU [Concomitant]
     Indication: COLORECTAL CANCER METASTATIC
  4. OXALIPLATIN [Concomitant]
     Indication: COLORECTAL CANCER METASTATIC

REACTIONS (1)
  - Death [Fatal]
